FAERS Safety Report 9405118 (Version 1)
Quarter: 2013Q3

REPORT INFORMATION
  Report Type: Spontaneous
  Country: GB (occurrence: GB)
  Receive Date: 20130717
  Receipt Date: 20130717
  Transmission Date: 20140515
  Serious: Yes (Other)
  Sender: FDA-Public Use
  Company Number: GB-PFIZER INC-2013203476

PATIENT
  Age: 17 Year
  Sex: Male

DRUGS (1)
  1. BENEFIX [Suspect]
     Dosage: UNK

REACTIONS (1)
  - Renal haemorrhage [Unknown]
